FAERS Safety Report 5458028-9 (Version None)
Quarter: 2007Q3

REPORT INFORMATION
  Report Type: 
  Country: None (occurrence: None)
  Receive Date: 20070919
  Receipt Date: 20070911
  Transmission Date: 20080115
  Serious: Yes (Other)
  Sender: FDA-Public Use
  Company Number: PHBS2007JP15170

PATIENT
  Age: 72 Year
  Sex: Female

DRUGS (1)
  1. VOLTAREN [Suspect]
     Dosage: 37.5 MG/DAY
     Route: 048
     Dates: start: 20060801, end: 20060901

REACTIONS (1)
  - OCULOMUCOCUTANEOUS SYNDROME [None]
